FAERS Safety Report 24996209 (Version 2)
Quarter: 2025Q1

REPORT INFORMATION
  Report Type: Spontaneous
  Country: CA (occurrence: CA)
  Receive Date: 20250221
  Receipt Date: 20250303
  Transmission Date: 20250408
  Serious: Yes (Hospitalization)
  Sender: MYLAN
  Company Number: CA-MYLANLABS-2025M1015715

PATIENT
  Sex: Male

DRUGS (12)
  1. REVATIO [Suspect]
     Active Substance: SILDENAFIL CITRATE
     Indication: Pulmonary arterial hypertension
     Dosage: 20 MILLIGRAM, TID (IN 3 DAYS)
  2. REVATIO [Suspect]
     Active Substance: SILDENAFIL CITRATE
     Dosage: 20 MILLIGRAM, TID (IN 3 DAYS)
     Route: 048
  3. REVATIO [Suspect]
     Active Substance: SILDENAFIL CITRATE
     Dosage: 20 MILLIGRAM, TID (IN 3 DAYS)
     Route: 048
  4. REVATIO [Suspect]
     Active Substance: SILDENAFIL CITRATE
     Dosage: 20 MILLIGRAM, TID (IN 3 DAYS)
  5. UPTRAVI [Concomitant]
     Active Substance: SELEXIPAG
  6. UPTRAVI [Concomitant]
     Active Substance: SELEXIPAG
     Route: 065
  7. UPTRAVI [Concomitant]
     Active Substance: SELEXIPAG
     Route: 065
  8. UPTRAVI [Concomitant]
     Active Substance: SELEXIPAG
  9. AMBRISENTAN [Concomitant]
     Active Substance: AMBRISENTAN
  10. AMBRISENTAN [Concomitant]
     Active Substance: AMBRISENTAN
     Route: 065
  11. AMBRISENTAN [Concomitant]
     Active Substance: AMBRISENTAN
     Route: 065
  12. AMBRISENTAN [Concomitant]
     Active Substance: AMBRISENTAN

REACTIONS (4)
  - Abdominal distension [Unknown]
  - Fluid retention [Unknown]
  - Headache [Unknown]
  - Diarrhoea [Unknown]
